FAERS Safety Report 11610263 (Version 1)
Quarter: 2015Q4

REPORT INFORMATION
  Report Type: Spontaneous
  Country: US (occurrence: US)
  Receive Date: 20151008
  Receipt Date: 20151008
  Transmission Date: 20160304
  Serious: Yes (Other)
  Sender: FDA-Public Use
  Company Number: US-AUROBINDO-AUR-APL-2015-08805

PATIENT
  Sex: Male

DRUGS (1)
  1. MINOCYCLINE [Suspect]
     Active Substance: MINOCYCLINE\MINOCYCLINE HYDROCHLORIDE
     Indication: ROSACEA
     Dosage: 100 MG, TWO TIMES A DAY
     Route: 048

REACTIONS (5)
  - Deposit eye [Unknown]
  - Retinal pigmentation [Unknown]
  - Nail discolouration [Unknown]
  - Scleral discolouration [Unknown]
  - Cataract [Unknown]
